FAERS Safety Report 20323085 (Version 1)
Quarter: 2022Q1

REPORT INFORMATION
  Report Type: Spontaneous
  Country: US (occurrence: US)
  Receive Date: 20220111
  Receipt Date: 20220111
  Transmission Date: 20220424
  Serious: Yes (Hospitalization, Other)
  Sender: FDA-Public Use
  Company Number: US-PFIZER INC-202101878874

PATIENT
  Age: 69 Year
  Sex: Female

DRUGS (4)
  1. CARBOPLATIN [Suspect]
     Active Substance: CARBOPLATIN
     Indication: Ovarian cancer metastatic
     Dosage: UNK UNK, CYCLIC, 3
  2. CARBOPLATIN [Suspect]
     Active Substance: CARBOPLATIN
     Dosage: UNK UNK, CYCLIC, 5
  3. DOXORUBICIN HYDROCHLORIDE [Suspect]
     Active Substance: DOXORUBICIN HYDROCHLORIDE
     Indication: Ovarian cancer metastatic
     Dosage: UNK, CYCLIC, 3
  4. DOXORUBICIN HYDROCHLORIDE [Suspect]
     Active Substance: DOXORUBICIN HYDROCHLORIDE
     Dosage: UNK, CYCLIC, 5

REACTIONS (1)
  - Sarcoidosis [Recovering/Resolving]
